FAERS Safety Report 8085280-6 (Version None)
Quarter: 2012Q1

REPORT INFORMATION
  Report Type: 
  Country: None (occurrence: None)
  Receive Date: 20120128
  Receipt Date: 20110321
  Transmission Date: 20120608
  Serious: No
  Sender: FDA-Public Use
  Company Number: US-ABBOTT-11P-163-0713432-00

PATIENT
  Sex: Male
  Weight: 67.192 kg

DRUGS (4)
  1. ALLEGRA [Concomitant]
     Indication: HYPERSENSITIVITY
  2. MERCAPTOPURINE [Concomitant]
     Indication: CROHN'S DISEASE
  3. HUMIRA [Suspect]
     Indication: CROHN'S DISEASE
     Dates: start: 20110218
  4. LIALDA [Concomitant]
     Indication: CROHN'S DISEASE

REACTIONS (1)
  - DRUG DISPENSING ERROR [None]
